FAERS Safety Report 13031357 (Version 1)
Quarter: 2016Q4

REPORT INFORMATION
  Report Type: Spontaneous
  Country: US (occurrence: US)
  Receive Date: 20161215
  Receipt Date: 20161215
  Transmission Date: 20170207
  Serious: No
  Sender: FDA-Public Use
  Company Number: US-SA-2016SA106034

PATIENT
  Age: 54 Year
  Sex: Female

DRUGS (6)
  1. FERRLECIT [Suspect]
     Active Substance: SODIUM FERRIC GLUCONATE COMPLEX
     Indication: IRON DEFICIENCY ANAEMIA
     Dosage: DOSE:250MG / 100ML NS
     Route: 065
     Dates: start: 20160523, end: 20160523
  2. FERRLECIT [Suspect]
     Active Substance: SODIUM FERRIC GLUCONATE COMPLEX
     Indication: CHRONIC KIDNEY DISEASE
     Dosage: DOSE:250MG / 100ML NS
     Route: 065
     Dates: start: 20160527, end: 20160527
  3. FERRLECIT [Suspect]
     Active Substance: SODIUM FERRIC GLUCONATE COMPLEX
     Indication: CHRONIC KIDNEY DISEASE
     Dosage: DOSE:250MG / 100ML NS
     Route: 065
     Dates: start: 20160525, end: 20160525
  4. FERRLECIT [Suspect]
     Active Substance: SODIUM FERRIC GLUCONATE COMPLEX
     Indication: CHRONIC KIDNEY DISEASE
     Dosage: DOSE:250MG / 100ML NS
     Route: 065
     Dates: start: 20160523, end: 20160523
  5. FERRLECIT [Suspect]
     Active Substance: SODIUM FERRIC GLUCONATE COMPLEX
     Indication: IRON DEFICIENCY ANAEMIA
     Dosage: DOSE:250MG / 100ML NS
     Route: 065
     Dates: start: 20160525, end: 20160525
  6. FERRLECIT [Suspect]
     Active Substance: SODIUM FERRIC GLUCONATE COMPLEX
     Indication: IRON DEFICIENCY ANAEMIA
     Dosage: DOSE:250MG / 100ML NS
     Route: 065
     Dates: start: 20160527, end: 20160527

REACTIONS (1)
  - Urticaria [Unknown]

NARRATIVE: CASE EVENT DATE: 20160523
